FAERS Safety Report 24425032 (Version 1)
Quarter: 2024Q4

REPORT INFORMATION
  Report Type: Spontaneous
  Country: NZ (occurrence: NZ)
  Receive Date: 20241010
  Receipt Date: 20241010
  Transmission Date: 20250114
  Serious: Yes (Hospitalization, Other)
  Sender: MERCK
  Company Number: NZ-009507513-2410NZL000865

PATIENT
  Age: 40 Year
  Sex: Female

DRUGS (10)
  1. SUGAMMADEX SODIUM [Suspect]
     Active Substance: SUGAMMADEX SODIUM
     Indication: Extubation
     Dosage: 400 MILLIGRAM; FREQUENCY: 1(TOTAL)
     Dates: start: 20231203, end: 20231203
  2. ROCURONIUM BROMIDE [Concomitant]
     Active Substance: ROCURONIUM BROMIDE
     Dosage: 100 MILLIGRAM
     Dates: start: 20231203, end: 20231203
  3. REMIFENTANIL [Concomitant]
     Active Substance: REMIFENTANIL
     Dosage: UNK
     Dates: start: 20231203, end: 20231203
  4. PROPOFOL [Concomitant]
     Active Substance: PROPOFOL
     Dosage: UNK
     Dates: start: 20231203, end: 20231203
  5. MORPHINE [Concomitant]
     Active Substance: MORPHINE
     Dosage: UNK
     Dates: start: 20231203, end: 20231203
  6. MIDAZOLAM [Concomitant]
     Active Substance: MIDAZOLAM
     Dosage: 2 MILLIGRAM
     Dates: start: 20231203, end: 20231203
  7. METRONIDAZOLE [Concomitant]
     Active Substance: METRONIDAZOLE
     Dosage: UNK
     Dates: start: 20231203, end: 20231203
  8. METARAMINOL [Concomitant]
     Active Substance: METARAMINOL
     Dosage: UNK
     Dates: start: 20231203, end: 20231203
  9. FENTANYL [Concomitant]
     Active Substance: FENTANYL
     Dosage: 50 MICROGRAM
  10. CEFUROXIME [Concomitant]
     Active Substance: CEFUROXIME

REACTIONS (6)
  - Airway peak pressure increased [Unknown]
  - Extrasystoles [Unknown]
  - Hypoxia [Unknown]
  - Bronchospasm [Unknown]
  - Bradycardia [Unknown]
  - Hypotension [Unknown]

NARRATIVE: CASE EVENT DATE: 20231203
